FAERS Safety Report 6377510-3 (Version None)
Quarter: 2009Q3

REPORT INFORMATION
  Report Type: 
  Country: None (occurrence: None)
  Receive Date: 20090925
  Receipt Date: 20090918
  Transmission Date: 20100115
  Serious: Yes (Hospitalization)
  Sender: FDA-Public Use
  Company Number: US-ABBOTT-09P-163-0598431-00

PATIENT
  Sex: Female
  Weight: 80.812 kg

DRUGS (3)
  1. KALETRA [Suspect]
     Indication: HIV INFECTION
     Dosage: TWICE A DAY
     Route: 048
     Dates: start: 20090401
  2. TRUVADA [Suspect]
     Indication: HIV INFECTION
     Dosage: ONE A DAY
     Route: 048
  3. ANTIBIOTICS [Concomitant]
     Indication: HIV INFECTION

REACTIONS (2)
  - AMNESIA [None]
  - DEMENTIA [None]
